FAERS Safety Report 14394019 (Version 1)
Quarter: 2018Q1

REPORT INFORMATION
  Report Type: Spontaneous
  Country: US (occurrence: US)
  Receive Date: 20180116
  Receipt Date: 20180116
  Transmission Date: 20180509
  Serious: No
  Sender: FDA-Public Use
  Company Number: US-REGENERON PHARMACEUTICALS, INC.-2017-17791

PATIENT

DRUGS (2)
  1. EYLEA [Suspect]
     Active Substance: AFLIBERCEPT
     Indication: OCULAR VASCULAR DISORDER
     Dosage: UNK, OD
     Route: 031
     Dates: start: 201706, end: 201706
  2. EYLEA [Suspect]
     Active Substance: AFLIBERCEPT
     Indication: EYE HAEMORRHAGE

REACTIONS (8)
  - Lacrimation increased [Unknown]
  - Injection site discomfort [Unknown]
  - Ocular hyperaemia [Unknown]
  - Fear of injection [Unknown]
  - Skin wrinkling [Unknown]
  - Eye swelling [Unknown]
  - Eye discharge [Unknown]
  - Drug ineffective [Unknown]

NARRATIVE: CASE EVENT DATE: 201706
